FAERS Safety Report 9324788 (Version 3)
Quarter: 2013Q3

REPORT INFORMATION
  Report Type: Spontaneous
  Country: DE (occurrence: None)
  Receive Date: 20130529
  Receipt Date: 20130705
  Transmission Date: 20140515
  Serious: Yes (Hospitalization)
  Sender: FDA-Public Use
  Company Number: TPG2013A00581

PATIENT
  Age: 69 Year
  Sex: Male

DRUGS (2)
  1. EDARBI [Suspect]
     Indication: ESSENTIAL HYPERTENSION
     Dosage: (40 MG, 1 IN 1 D)
     Route: 048
     Dates: start: 20120222, end: 20121214
  2. STATIN (HMG COA REDUCTASE INHIBITORS) [Concomitant]

REACTIONS (2)
  - Myocardial infarction [None]
  - Coronary artery disease [None]
